FAERS Safety Report 5636973-9 (Version None)
Quarter: 2008Q1

REPORT INFORMATION
  Report Type: 
  Country: None (occurrence: None)
  Receive Date: 20080225
  Receipt Date: 20070302
  Transmission Date: 20080703
  Serious: No
  Sender: FDA-Public Use
  Company Number: US-BRISTOL-MYERS SQUIBB COMPANY-13699103

PATIENT
  Age: 61 Year
  Sex: Male
  Weight: 96 kg

DRUGS (5)
  1. GLUCOPHAGE [Suspect]
     Indication: BLOOD GLUCOSE FLUCTUATION
  2. CRESTOR [Concomitant]
  3. ASPIRIN [Concomitant]
  4. NORTRIPTYLINE HCL [Concomitant]
  5. ALTACE [Concomitant]

REACTIONS (1)
  - DRUG INEFFECTIVE [None]
